FAERS Safety Report 19002225 (Version 1)
Quarter: 2021Q1

REPORT INFORMATION
  Report Type: Spontaneous
  Country: US (occurrence: US)
  Receive Date: 20210312
  Receipt Date: 20210312
  Transmission Date: 20210420
  Serious: No
  Sender: FDA-Public Use
  Company Number: US-B.I. PHARMACEUTICALS,INC./RIDGEFIELD-2021-BI-089757

PATIENT
  Sex: Female

DRUGS (1)
  1. SPIRIVA [Suspect]
     Active Substance: TIOTROPIUM BROMIDE MONOHYDRATE
     Indication: PRODUCT USED FOR UNKNOWN INDICATION
     Dosage: NR

REACTIONS (6)
  - Urinary tract infection [Unknown]
  - Vomiting [Unknown]
  - Diarrhoea [Unknown]
  - Incorrect route of product administration [Recovered/Resolved]
  - Food poisoning [Unknown]
  - Somnolence [Unknown]

NARRATIVE: CASE EVENT DATE: 20210311
